FAERS Safety Report 21937134 (Version 1)
Quarter: 2023Q1

REPORT INFORMATION
  Report Type: Report from Study
  Country: US (occurrence: JP)
  Receive Date: 20230201
  Receipt Date: 20230201
  Transmission Date: 20230417
  Serious: No
  Sender: FDA-Public Use
  Company Number: US-EPIZYME, INC-2022JPEPIZYME0753

PATIENT

DRUGS (1)
  1. TAZVERIK [Suspect]
     Active Substance: TAZEMETOSTAT HYDROBROMIDE
     Indication: Follicular lymphoma
     Dosage: 1600 MG, QD
     Route: 048
     Dates: start: 20221014

REACTIONS (1)
  - Taste disorder [Unknown]
